FAERS Safety Report 13917404 (Version 4)
Quarter: 2018Q2

REPORT INFORMATION
  Report Type: Spontaneous
  Country: JP (occurrence: JP)
  Receive Date: 20170829
  Receipt Date: 20180427
  Transmission Date: 20180711
  Serious: Yes (Hospitalization)
  Sender: FDA-Public Use
  Company Number: JP-GLAXOSMITHKLINE-JP2017JPN131114

PATIENT
  Age: 15 Year
  Sex: Female
  Weight: 46 kg

DRUGS (3)
  1. LAMICTAL [Suspect]
     Active Substance: LAMOTRIGINE
     Dosage: 25 MG, 1D
     Route: 048
     Dates: start: 20170714, end: 20170807
  2. LAMICTAL [Suspect]
     Active Substance: LAMOTRIGINE
     Indication: DEPRESSION
     Dosage: 25 MG, QOD
     Route: 048
     Dates: start: 20170616, end: 20170713
  3. FLUVOXAMINE MALEATE. [Concomitant]
     Active Substance: FLUVOXAMINE MALEATE
     Dosage: UNK

REACTIONS (8)
  - Liver disorder [Recovered/Resolved]
  - Rash [Recovered/Resolved]
  - Lymphadenopathy [Unknown]
  - Pyrexia [Unknown]
  - Erythema [Unknown]
  - Lip swelling [Unknown]
  - Drug eruption [Recovered/Resolved]
  - Decreased appetite [Unknown]

NARRATIVE: CASE EVENT DATE: 20170803
